FAERS Safety Report 10308322 (Version 1)
Quarter: 2014Q3

REPORT INFORMATION
  Report Type: Spontaneous
  Country: GB (occurrence: None)
  Receive Date: 20140714
  Receipt Date: 20140714
  Transmission Date: 20150326
  Serious: Yes (Life-Threatening, Hospitalization, Disabling, Other)
  Sender: FDA-Public Use
  Company Number: AUR-APL-2014-02998

PATIENT
  Age: 63 Year
  Sex: Male
  Weight: 80 kg

DRUGS (2)
  1. TRAMADOL 50MG CAPSULES, HARD (TRAMADOL) CAPSULE, HARD, 50MG [Suspect]
     Active Substance: TRAMADOL
     Indication: BACK PAIN
     Route: 048
     Dates: start: 201310, end: 201310
  2. ORAMORPH (MORPHINE SULFATE PENTAHYDRATE) [Concomitant]

REACTIONS (6)
  - Aphonia [None]
  - Dysphonia [None]
  - Constipation [None]
  - Vomiting [None]
  - Dysphagia [None]
  - Weight decreased [None]

NARRATIVE: CASE EVENT DATE: 201310
